FAERS Safety Report 24316614 (Version 1)
Quarter: 2024Q3

REPORT INFORMATION
  Report Type: Spontaneous
  Country: JP (occurrence: JP)
  Receive Date: 20240913
  Receipt Date: 20240913
  Transmission Date: 20241017
  Serious: Yes (Disabling)
  Sender: EISAI
  Company Number: JP-Eisai-202406940_LEN-RCC_P_1

PATIENT
  Age: 75 Year

DRUGS (2)
  1. LENVIMA [Suspect]
     Active Substance: LENVATINIB
     Indication: Renal cell carcinoma
     Route: 048
  2. KEYTRUDA [Concomitant]
     Active Substance: PEMBROLIZUMAB
     Indication: Renal cell carcinoma
     Dosage: DOSE UNKNOWN
     Route: 065

REACTIONS (1)
  - Myasthenia gravis [Recovered/Resolved with Sequelae]
